FAERS Safety Report 4310411-0 (Version None)
Quarter: 2004Q1

REPORT INFORMATION
  Report Type: 
  Country: None (occurrence: None)
  Receive Date: 20040303
  Receipt Date: 20040213
  Transmission Date: 20041129
  Serious: Yes (Life-Threatening, Other)
  Sender: FDA-Public Use
  Company Number: GBWYE535226JAN04

PATIENT
  Age: 8 Year
  Sex: Female

DRUGS (8)
  1. GEMTUZUMAB OZOGAMICIN (GEMTUZUMAB OZOGAMICIN, INJECTION) [Suspect]
     Indication: ACUTE MYELOID LEUKAEMIA
     Dosage: 9 MG/M^2 1X PER 1 TOT INTRAVENOUS
     Route: 042
     Dates: start: 20040123, end: 20040123
  2. DIAMORPHINE (DIAMORPHINE) [Suspect]
     Indication: HEADACHE
  3. DIAMORPHINE (DIAMORPHINE) [Suspect]
     Indication: PAPILLOEDEMA
  4. DAUNORUBICIN HCL [Concomitant]
  5. ARA-C (CYTARTABINE) [Concomitant]
  6. ETOPOSIDE [Concomitant]
  7. FLUDARABINE PHOSPHATE [Concomitant]
  8. GRANULOCYTE COLONY STIMULATING FACTOR [Concomitant]

REACTIONS (8)
  - HEADACHE [None]
  - HYPERSENSITIVITY [None]
  - HYPOTENSION [None]
  - PAPILLOEDEMA [None]
  - PYREXIA [None]
  - RASH MACULAR [None]
  - STAPHYLOCOCCAL INFECTION [None]
  - THERAPEUTIC RESPONSE DELAYED [None]
